FAERS Safety Report 21015661 (Version 2)
Quarter: 2022Q3

REPORT INFORMATION
  Report Type: Spontaneous
  Country: DK (occurrence: DK)
  Receive Date: 20220628
  Receipt Date: 20220707
  Transmission Date: 20221027
  Serious: Yes (Other)
  Sender: FDA-Public Use
  Company Number: DK-BoehringerIngelheim-2022-BI-178014

PATIENT
  Age: 57 Year
  Sex: Female

DRUGS (2)
  1. PRAMIPEXOLE [Suspect]
     Active Substance: PRAMIPEXOLE
     Indication: Restless legs syndrome
     Dates: start: 2007
  2. PRAMIPEXOLE [Suspect]
     Active Substance: PRAMIPEXOLE
     Dates: start: 2012

REACTIONS (4)
  - Gambling disorder [Recovered/Resolved]
  - Suicidal ideation [Unknown]
  - Depression [Unknown]
  - Fatigue [Unknown]

NARRATIVE: CASE EVENT DATE: 20100101
